FAERS Safety Report 7888261-8 (Version None)
Quarter: 2011Q4

REPORT INFORMATION
  Report Type: 
  Country: None (occurrence: None)
  Receive Date: 20111103
  Receipt Date: 20111021
  Transmission Date: 20120403
  Serious: Yes (Other)
  Sender: FDA-Public Use
  Company Number: US-ELI_LILLY_AND_COMPANY-US201109005103

PATIENT
  Sex: Female

DRUGS (13)
  1. XANAX [Concomitant]
     Dosage: 1 MG, UNK
  2. LASIX [Concomitant]
  3. MIRALAX [Concomitant]
     Indication: DIARRHOEA
  4. OCEAN NASAL SPRAY [Concomitant]
  5. FORTEO [Suspect]
     Dosage: 20 UG, QD
  6. ALBUTEROL [Concomitant]
  7. PREDNISONE [Concomitant]
  8. PULMICORT [Concomitant]
  9. SPIRIVA [Concomitant]
  10. MS CONTIN [Concomitant]
  11. FORTEO [Suspect]
     Indication: OSTEOPOROSIS
     Dosage: 20 UG, QD
     Dates: start: 20110201
  12. FORTEO [Suspect]
     Dosage: 20 UG, QD
  13. VENTOLIN                                /SCH/ [Concomitant]

REACTIONS (5)
  - SPINAL FRACTURE [None]
  - BACK PAIN [None]
  - INJECTION SITE HAEMATOMA [None]
  - LUNG DISORDER [None]
  - INJECTION SITE ERYTHEMA [None]
